FAERS Safety Report 5803325-8 (Version None)
Quarter: 2008Q3

REPORT INFORMATION
  Report Type: 
  Country: None (occurrence: None)
  Receive Date: 20080708
  Receipt Date: 20080701
  Transmission Date: 20090109
  Serious: Yes (Hospitalization, Disabling)
  Sender: FDA-Public Use
  Company Number: US-ASTRAZENECA-2006UW03307

PATIENT
  Age: 351 Month
  Sex: Female
  Weight: 90.9 kg

DRUGS (5)
  1. SEROQUEL [Suspect]
     Indication: BIPOLAR DISORDER
     Route: 048
     Dates: start: 20020213, end: 20050830
  2. SEROQUEL [Suspect]
     Indication: DEPRESSION
     Route: 048
     Dates: start: 20020213, end: 20050830
  3. GEODON [Concomitant]
     Dates: start: 20031201
  4. RISPERDAL [Concomitant]
     Dates: start: 20020101
  5. CHLORPROMAZINE [Concomitant]
     Dates: start: 20031201

REACTIONS (12)
  - BLOOD CHOLESTEROL INCREASED [None]
  - BLOOD TRIGLYCERIDES INCREASED [None]
  - COLITIS [None]
  - DIABETES MELLITUS [None]
  - GASTRIC OPERATION [None]
  - HERNIA [None]
  - HYPERGLYCAEMIA [None]
  - HYPOKALAEMIA [None]
  - LIVER INJURY [None]
  - OBESITY [None]
  - PANCREATITIS [None]
  - WEIGHT INCREASED [None]
